FAERS Safety Report 6251618-5 (Version None)
Quarter: 2009Q2

REPORT INFORMATION
  Report Type: 
  Country: None (occurrence: None)
  Receive Date: 20090626
  Receipt Date: 20090626
  Transmission Date: 20091009
  Serious: Yes (Other)
  Sender: FDA-Public Use
  Company Number: None

PATIENT
  Age: 58 Year
  Sex: Female
  Weight: 59.8748 kg

DRUGS (3)
  1. LAMOTRIGINE [Suspect]
     Indication: BIPOLAR II DISORDER
     Dates: start: 20080821, end: 20080908
  2. LUNESTA [Concomitant]
  3. CAMPRAL [Concomitant]

REACTIONS (6)
  - DECREASED APPETITE [None]
  - DEPRESSION [None]
  - FEELING ABNORMAL [None]
  - INSOMNIA [None]
  - LACRIMATION INCREASED [None]
  - PRODUCT SUBSTITUTION ISSUE [None]
